FAERS Safety Report 6196755-9 (Version None)
Quarter: 2009Q2

REPORT INFORMATION
  Report Type: 
  Country: None (occurrence: None)
  Receive Date: 20090520
  Receipt Date: 20090512
  Transmission Date: 20091009
  Serious: No
  Sender: FDA-Public Use
  Company Number: US-B.I. PHARMACEUTICALS,INC./RIDGEFIELD-2009-BP-05891BP

PATIENT
  Sex: Male

DRUGS (11)
  1. FLOMAX [Suspect]
     Indication: BENIGN PROSTATIC HYPERPLASIA
     Dosage: .4MG
     Route: 048
     Dates: start: 20090506
  2. QVAR 40 [Concomitant]
     Indication: ASTHMA
  3. ADVAIR HFA [Concomitant]
     Indication: ASTHMA
  4. ATENOLOL [Concomitant]
     Indication: CARDIAC DISORDER
  5. ZETIA [Concomitant]
     Indication: BLOOD CHOLESTEROL INCREASED
  6. LIPITOR [Concomitant]
     Indication: BLOOD CHOLESTEROL INCREASED
  7. ALTACE [Concomitant]
     Indication: CARDIAC DISORDER
  8. ASPIRIN [Concomitant]
     Indication: CARDIAC DISORDER
  9. NASONEX [Concomitant]
     Indication: ASTHMA
  10. ASTEPRO [Concomitant]
     Indication: ASTHMA
  11. NEXIUM [Concomitant]
     Indication: OESOPHAGEAL ULCER

REACTIONS (1)
  - VISION BLURRED [None]
